FAERS Safety Report 23180329 (Version 6)
Quarter: 2023Q4

REPORT INFORMATION
  Report Type: Spontaneous
  Country: JP (occurrence: None)
  Receive Date: 20231114
  Receipt Date: 20231221
  Transmission Date: 20240110
  Serious: Yes (Death, Life-Threatening, Hospitalization)
  Sender: FDA-Public Use
  Company Number: 2023A248863

PATIENT
  Age: 25859 Day
  Sex: Male
  Weight: 100 kg

DRUGS (14)
  1. IMFINZI [Suspect]
     Active Substance: DURVALUMAB
     Indication: Hepatocellular carcinoma
     Dosage: 1500.0MG UNKNOWN
     Route: 041
     Dates: start: 20231003, end: 20231003
  2. IMJUDO [Suspect]
     Active Substance: TREMELIMUMAB\TREMELIMUMAB-ACTL
     Indication: Hepatocellular carcinoma
     Dosage: 300.0MG UNKNOWN
     Route: 041
     Dates: start: 20231003, end: 20231003
  3. OMEPRAZOLE [Concomitant]
     Active Substance: OMEPRAZOLE
     Dosage: AFTER DINNER
     Route: 048
  4. TOFOGLIFLOZIN [Concomitant]
     Active Substance: TOFOGLIFLOZIN
     Indication: Diabetes mellitus
     Dosage: AFTER BREAKFAST
     Route: 048
  5. TELMISARTAN [Concomitant]
     Active Substance: TELMISARTAN
     Dosage: AFTER BREAKFAST
     Route: 048
  6. ALLOPURINOL [Concomitant]
     Active Substance: ALLOPURINOL
     Dosage: AFTER BREAKFAST AND DINNER
     Route: 048
  7. URSODIOL [Concomitant]
     Active Substance: URSODIOL
     Dosage: AFTER BREAKFAST AND DINNER
     Route: 048
  8. LECITHIN [Concomitant]
     Active Substance: LECITHIN
     Dosage: AFTER BREAKFAST AND DINNER
     Route: 048
  9. PEMAFIBRATE [Concomitant]
     Active Substance: PEMAFIBRATE
     Dosage: AFTER BREAKFAST AND DINNER
     Route: 048
  10. TSUMURA HOCHUEKKITO EXTRACT GRANULES FOR ETHICAL USE [Concomitant]
     Dosage: BEFORE EACH MEALS
     Route: 048
  11. AMINO ACIDS, SOURCE UNSPECIFIED [Concomitant]
     Active Substance: AMINO ACIDS, SOURCE UNSPECIFIED
     Dosage: AFTER EACH MEALS
     Route: 048
  12. MOUNJARO [Concomitant]
     Active Substance: TIRZEPATIDE
     Indication: Diabetes mellitus
     Dosage: EVERY FRIDAY, SELF-INJECTION
     Route: 058
  13. BILANOA OD [Concomitant]
     Dosage: BEFORE BEDTIME
     Route: 048
  14. LATANOPROST [Concomitant]
     Active Substance: LATANOPROST
     Dosage: BOTH EYES, AT NIGHT
     Route: 047

REACTIONS (2)
  - Myocarditis [Fatal]
  - Myasthenia gravis [Fatal]

NARRATIVE: CASE EVENT DATE: 20231021
